FAERS Safety Report 7226360-4 (Version None)
Quarter: 2011Q1

REPORT INFORMATION
  Report Type: 
  Country: None (occurrence: None)
  Receive Date: 20110114
  Receipt Date: 20110110
  Transmission Date: 20110831
  Serious: Yes (Death)
  Sender: FDA-Public Use
  Company Number: PHHY2010DE82160

PATIENT
  Sex: Male
  Weight: 82 kg

DRUGS (1)
  1. EXJADE [Suspect]
     Indication: HAEMOSIDEROSIS
     Dosage: 1500 MG, DAILY
     Route: 048
     Dates: start: 20091003

REACTIONS (2)
  - PNEUMONIA [None]
  - NEOPLASM MALIGNANT [None]
